FAERS Safety Report 15781735 (Version 1)
Quarter: 2018Q4

REPORT INFORMATION
  Report Type: Spontaneous
  Country: US (occurrence: US)
  Receive Date: 20181212
  Receipt Date: 20181212
  Transmission Date: 20190205
  Serious: Yes (Hospitalization)
  Sender: FDA-Public Use
  Company Number: None

PATIENT
  Age: 25 Year
  Sex: Female
  Weight: 15.6 kg

DRUGS (1)
  1. CLOBAZAM. [Suspect]
     Active Substance: CLOBAZAM
     Indication: SEVERE MYOCLONIC EPILEPSY OF INFANCY
     Route: 048
     Dates: start: 20181123, end: 20181207

REACTIONS (4)
  - Product substitution issue [None]
  - Drug ineffective [None]
  - Seizure [None]
  - Status epilepticus [None]

NARRATIVE: CASE EVENT DATE: 20181207
